FAERS Safety Report 7622793-2 (Version None)
Quarter: 2011Q3

REPORT INFORMATION
  Report Type: 
  Country: None (occurrence: None)
  Receive Date: 20110719
  Receipt Date: 20110719
  Transmission Date: 20111222
  Serious: Yes (Other)
  Sender: FDA-Public Use
  Company Number: None

PATIENT
  Age: 96 Year
  Sex: Female

DRUGS (1)
  1. BACTRIM DS [Suspect]
     Indication: INFECTION
     Dosage: BY MOUTH TWICE DAILY 3/

REACTIONS (1)
  - BLOOD CREATININE INCREASED [None]
